FAERS Safety Report 19231046 (Version 1)
Quarter: 2021Q2

REPORT INFORMATION
  Report Type: Spontaneous
  Country: US (occurrence: US)
  Receive Date: 20210507
  Receipt Date: 20210507
  Transmission Date: 20210717
  Serious: No
  Sender: FDA-Public Use
  Company Number: None

PATIENT
  Sex: Female

DRUGS (1)
  1. LEVOTHYROXINE. [Suspect]
     Active Substance: LEVOTHYROXINE
     Dosage: ?          OTHER FREQUENCY:6 DAYS/WEEK;?
     Route: 048

REACTIONS (2)
  - Product substitution issue [None]
  - Drug hypersensitivity [None]
